FAERS Safety Report 10464778 (Version 1)
Quarter: 2014Q3

REPORT INFORMATION
  Report Type: Spontaneous
  Country: DE (occurrence: DE)
  Receive Date: 20140919
  Receipt Date: 20140919
  Transmission Date: 20150326
  Serious: Yes (Hospitalization)
  Sender: FDA-Public Use
  Company Number: DE-ABBVIE-14K-062-1284842-00

PATIENT
  Age: 27 Year
  Sex: Female

DRUGS (8)
  1. STEROIDS [Concomitant]
     Active Substance: UNSPECIFIED INGREDIENT
     Indication: PRODUCT USED FOR UNKNOWN INDICATION
     Dates: end: 2013
  2. MUCOFALK [Concomitant]
     Indication: CROHN^S DISEASE
     Route: 048
     Dates: start: 201303
  3. PANTOPRAZOLE [Concomitant]
     Active Substance: PANTOPRAZOLE SODIUM
     Indication: GASTROOESOPHAGEAL REFLUX DISEASE
     Route: 048
     Dates: start: 201308
  4. COLESTYRAMINE [Concomitant]
     Active Substance: CHOLESTYRAMINE
     Indication: BILE ACID MALABSORPTION
     Dosage: 2-4 TIMES DAILY
     Route: 048
     Dates: start: 201307
  5. HUMIRA [Suspect]
     Active Substance: ADALIMUMAB
     Indication: CROHN^S DISEASE
     Route: 058
     Dates: start: 201211
  6. HUMIRA [Suspect]
     Active Substance: ADALIMUMAB
     Route: 058
  7. ENTEROPLANT [Concomitant]
     Indication: IRRITABLE BOWEL SYNDROME
     Dosage: UP TO 3 TIMES DAILY
     Route: 048
     Dates: start: 201303
  8. AZATHIOPRINE. [Suspect]
     Active Substance: AZATHIOPRINE
     Indication: CROHN^S DISEASE
     Route: 048
     Dates: start: 201310

REACTIONS (1)
  - Malignant melanoma [Recovered/Resolved]

NARRATIVE: CASE EVENT DATE: 201311
